FAERS Safety Report 14009859 (Version 27)
Quarter: 2019Q3

REPORT INFORMATION
  Report Type: Report from Study
  Country: US (occurrence: US)
  Receive Date: 20170925
  Receipt Date: 20190802
  Transmission Date: 20191004
  Serious: Yes (Hospitalization, Other)
  Sender: FDA-Public Use
  Company Number: US-ACTELION-A-US2017-151210

PATIENT
  Age: 56 Year
  Sex: Female
  Weight: 50.79 kg

DRUGS (13)
  1. SILDENAFIL CITRATE. [Concomitant]
     Active Substance: SILDENAFIL CITRATE
     Dosage: 20 MG, TID
  2. VELETRI [Suspect]
     Active Substance: EPOPROSTENOL
     Dosage: 11 NG/KG, PER MIN
     Route: 042
  3. VELETRI [Suspect]
     Active Substance: EPOPROSTENOL
     Dosage: 28 NG/KG, PER MIN
     Route: 042
  4. VELETRI [Suspect]
     Active Substance: EPOPROSTENOL
     Dosage: 16 NG/KG, PER MIN
     Route: 042
  5. VELETRI [Suspect]
     Active Substance: EPOPROSTENOL
     Dosage: UNK
     Route: 042
  6. VELETRI [Suspect]
     Active Substance: EPOPROSTENOL
     Dosage: 20 NG/KG, PER MIN
     Route: 042
  7. VELETRI [Suspect]
     Active Substance: EPOPROSTENOL
     Dosage: UNK
     Route: 042
  8. VELETRI [Suspect]
     Active Substance: EPOPROSTENOL
     Dosage: 26 NG/KG, PER MIN
     Route: 042
  9. VELETRI [Suspect]
     Active Substance: EPOPROSTENOL
     Dosage: 26 NG/KG, PER MIN
     Route: 042
  10. LETAIRIS [Suspect]
     Active Substance: AMBRISENTAN
     Indication: PULMONARY HYPERTENSION
     Dosage: 10 MG, QD
     Route: 048
     Dates: start: 20170109
  11. VELETRI [Suspect]
     Active Substance: EPOPROSTENOL
     Indication: PULMONARY HYPERTENSION
     Dosage: 26 NG/KG, PER MIN
     Route: 042
  12. VELETRI [Suspect]
     Active Substance: EPOPROSTENOL
     Dosage: 19 NG/KG, PER MIN
     Route: 042
  13. VELETRI [Suspect]
     Active Substance: EPOPROSTENOL
     Dosage: 20 NG/KG, PER MIN
     Route: 042

REACTIONS (47)
  - Renal failure [Unknown]
  - Pain [Not Recovered/Not Resolved]
  - Bronchitis [Unknown]
  - Exercise tolerance increased [Unknown]
  - Haemoglobin [Unknown]
  - Hospitalisation [Unknown]
  - Catheter site pruritus [Unknown]
  - Arthritis [Unknown]
  - Pain in extremity [Recovered/Resolved]
  - Pre-existing condition improved [Unknown]
  - Weight decreased [Unknown]
  - Hemiparesis [Not Recovered/Not Resolved]
  - Hypertension [Unknown]
  - Therapeutic embolisation [Unknown]
  - Haemoglobin decreased [Unknown]
  - Application site urticaria [Unknown]
  - Catheter site swelling [Unknown]
  - Urticaria [Unknown]
  - Decreased appetite [Unknown]
  - Asthma [Unknown]
  - Device related infection [Unknown]
  - Dehydration [Unknown]
  - Tumour haemorrhage [Unknown]
  - Application site pruritus [Unknown]
  - Muscular weakness [Recovered/Resolved]
  - Urinary tract infection [Unknown]
  - Muscle spasms [Unknown]
  - Acute kidney injury [Unknown]
  - Embolism [Unknown]
  - Rash [Unknown]
  - Rectal haemorrhage [Unknown]
  - Movement disorder [Not Recovered/Not Resolved]
  - Wound [Unknown]
  - Dyspnoea [Unknown]
  - Vascular device infection [Unknown]
  - Gastroenteritis norovirus [Unknown]
  - Dizziness [Unknown]
  - Pain in jaw [Unknown]
  - Nasopharyngitis [Not Recovered/Not Resolved]
  - Myalgia [Unknown]
  - Hypoaesthesia [Unknown]
  - Cystitis [Unknown]
  - Device dislocation [Unknown]
  - Haemorrhage [Unknown]
  - Headache [Unknown]
  - Onychoclasis [Unknown]
  - Emergency care [Unknown]

NARRATIVE: CASE EVENT DATE: 20181021
